FAERS Safety Report 8549352-1 (Version None)
Quarter: 2012Q3

REPORT INFORMATION
  Report Type: 
  Country: None (occurrence: None)
  Receive Date: 20120720
  Receipt Date: 20120720
  Transmission Date: 20120928
  Serious: Yes (Other)
  Sender: FDA-Public Use
  Company Number: None

PATIENT
  Sex: Female

DRUGS (3)
  1. MOBIC [Suspect]
     Indication: EPICONDYLITIS
     Dosage: ONCE A DAY PO
     Route: 048
     Dates: start: 20120713, end: 20120718
  2. MOBIC [Suspect]
     Indication: NERVE COMPRESSION
     Dosage: ONCE A DAY PO
     Route: 048
     Dates: start: 20120713, end: 20120718
  3. THYROID TAB [Concomitant]

REACTIONS (3)
  - OEDEMA PERIPHERAL [None]
  - CONTUSION [None]
  - WEIGHT INCREASED [None]
